FAERS Safety Report 7908107-9 (Version None)
Quarter: 2011Q4

REPORT INFORMATION
  Report Type: 
  Country: None (occurrence: None)
  Receive Date: 20111111
  Receipt Date: 20111103
  Transmission Date: 20120403
  Serious: Yes (Other)
  Sender: FDA-Public Use
  Company Number: PT-BIOGENIDEC-2011BI038547

PATIENT
  Age: 45 Year
  Sex: Male

DRUGS (1)
  1. AVONEX [Suspect]
     Indication: RELAPSING-REMITTING MULTIPLE SCLEROSIS
     Route: 030
     Dates: start: 19991001

REACTIONS (4)
  - COLITIS ULCERATIVE [None]
  - EXTENSOR PLANTAR RESPONSE [None]
  - DYSTHYMIC DISORDER [None]
  - HYPERREFLEXIA [None]
